FAERS Safety Report 24203319 (Version 1)
Quarter: 2024Q3

REPORT INFORMATION
  Report Type: Spontaneous
  Country: CA (occurrence: CA)
  Receive Date: 20240813
  Receipt Date: 20240813
  Transmission Date: 20241017
  Serious: Yes (Other)
  Sender: HIKMA
  Company Number: CA-HIKMA PHARMACEUTICALS USA INC.-CA-H14001-24-06345

PATIENT
  Age: 52 Year
  Sex: Male

DRUGS (28)
  1. ALUNBRIG [Suspect]
     Active Substance: BRIGATINIB
     Indication: Disease progression
     Dosage: UNKNOWN
     Route: 065
  2. ALUNBRIG [Suspect]
     Active Substance: BRIGATINIB
     Indication: Targeted cancer therapy
  3. AMILOMER [Suspect]
     Active Substance: AMILOMER
     Indication: Pancreatic carcinoma metastatic
     Dosage: UNKNOWN
     Route: 065
  4. BEVACIZUMAB [Suspect]
     Active Substance: BEVACIZUMAB
     Indication: Pancreatic carcinoma metastatic
     Dosage: UNKNOWN
     Route: 065
  5. CAPECITABINE [Suspect]
     Active Substance: CAPECITABINE
     Indication: Pancreatic carcinoma metastatic
     Dosage: UNKNOWN
     Route: 065
  6. CISPLATIN [Suspect]
     Active Substance: CISPLATIN
     Indication: Pancreatic carcinoma metastatic
     Dosage: UNKNOWN
     Route: 065
  7. DEMCIZUMAB [Suspect]
     Active Substance: DEMCIZUMAB
     Indication: Pancreatic carcinoma metastatic
     Dosage: UNKNOWN
     Route: 065
  8. DEMCIZUMAB [Suspect]
     Active Substance: DEMCIZUMAB
     Indication: Metastases to liver
  9. DOCETAXEL [Suspect]
     Active Substance: DOCETAXEL\DOCETAXEL ANHYDROUS
     Indication: Pancreatic carcinoma metastatic
     Dosage: UNKNOWN
     Route: 065
  10. ENTRECTINIB [Suspect]
     Active Substance: ENTRECTINIB
     Indication: Product used for unknown indication
     Dosage: UNKNOWN
     Route: 065
  11. ETHIODIZED OIL [Suspect]
     Active Substance: ETHIODIZED OIL
     Indication: Pancreatic carcinoma metastatic
     Dosage: UNKNOWN
     Route: 065
  12. FLUOROURACIL [Suspect]
     Active Substance: FLUOROURACIL
     Indication: Pancreatic carcinoma metastatic
     Dosage: UNKNOWN
     Route: 065
  13. GEMCITABINE [Suspect]
     Active Substance: GEMCITABINE
     Indication: Pancreatic carcinoma metastatic
     Dosage: UNKNOWN
     Route: 065
  14. GEMCITABINE [Suspect]
     Active Substance: GEMCITABINE
     Indication: Metastases to liver
  15. LORBRENA [Suspect]
     Active Substance: LORLATINIB
     Indication: Pulmonary mass
     Dosage: UNKNOWN
     Route: 065
  16. LORBRENA [Suspect]
     Active Substance: LORLATINIB
     Indication: Neoplasm
  17. MITOMYCIN [Suspect]
     Active Substance: MITOMYCIN
     Indication: Pancreatic carcinoma metastatic
     Dosage: UNKNOWN
     Route: 065
  18. OSIMERTINIB [Suspect]
     Active Substance: OSIMERTINIB
     Indication: Pancreatic carcinoma metastatic
     Dosage: UNKNOWN
     Route: 065
  19. OXALIPLATIN [Suspect]
     Active Substance: OXALIPLATIN
     Indication: Pancreatic carcinoma metastatic
     Dosage: UNKNOWN
     Route: 065
  20. PACLITAXEL [Suspect]
     Active Substance: PACLITAXEL
     Indication: Pancreatic carcinoma metastatic
     Dosage: UNKNOWN
     Route: 042
  21. PACLITAXEL [Suspect]
     Active Substance: PACLITAXEL
     Indication: Pancreatic carcinoma metastatic
     Dosage: UNKNOWN
     Route: 065
  22. PACLITAXEL [Suspect]
     Active Substance: PACLITAXEL
     Indication: Metastases to liver
  23. PEMBROLIZUMAB [Suspect]
     Active Substance: PEMBROLIZUMAB
     Indication: Brain cancer metastatic
     Dosage: UNKNOWN
     Route: 065
  24. PEMBROLIZUMAB [Suspect]
     Active Substance: PEMBROLIZUMAB
     Indication: Pancreatic carcinoma metastatic
  25. PEMETREXED [Suspect]
     Active Substance: PEMETREXED
     Indication: Pancreatic carcinoma metastatic
     Dosage: UNKNOWN
     Route: 065
  26. PERTUZUMAB [Suspect]
     Active Substance: PERTUZUMAB
     Indication: Pancreatic carcinoma metastatic
     Dosage: UNKNOWN
     Route: 065
  27. TRASTUZUMAB DERUXTECAN [Suspect]
     Active Substance: TRASTUZUMAB DERUXTECAN
     Indication: Pancreatic carcinoma metastatic
     Dosage: UNKNOWN
     Route: 065
  28. YTTRIUM CHLORIDE Y-90 [Suspect]
     Active Substance: YTTRIUM CHLORIDE Y-90
     Indication: Radiotherapy
     Dosage: UNKNOWN
     Route: 065

REACTIONS (3)
  - Pancreatic carcinoma metastatic [Unknown]
  - Disease progression [Unknown]
  - Drug ineffective [Unknown]
